FAERS Safety Report 9743936 (Version 1)
Quarter: 2013Q4

REPORT INFORMATION
  Report Type: Spontaneous
  Country: US (occurrence: US)
  Receive Date: 20131210
  Receipt Date: 20131210
  Transmission Date: 20140711
  Serious: No
  Sender: FDA-Public Use
  Company Number: US-BIOGENIDEC-2013BI097961

PATIENT
  Sex: Female

DRUGS (20)
  1. TECFIDERA [Suspect]
     Indication: MULTIPLE SCLEROSIS
     Route: 048
     Dates: start: 20130719, end: 20130725
  2. TECFIDERA [Suspect]
     Indication: MULTIPLE SCLEROSIS
     Route: 048
     Dates: start: 20130726
  3. ALICEPT [Concomitant]
  4. CLARITIN [Concomitant]
  5. DICLOFENAC SODIUM [Concomitant]
  6. ENALAPRIL [Concomitant]
  7. JANUVIA [Concomitant]
  8. L CARNITINE [Concomitant]
  9. LOVASTATIN [Concomitant]
  10. METFORMIN [Concomitant]
  11. NEURONTIN [Concomitant]
  12. NUVIGIL [Concomitant]
  13. PAXIL [Concomitant]
  14. PROTONIX [Concomitant]
  15. REQUIP [Concomitant]
  16. TOPAMAX [Concomitant]
  17. VITAMIN D3 [Concomitant]
  18. ZANAFLEX [Concomitant]
  19. B-COMPLEX [Concomitant]
  20. NORCO [Concomitant]

REACTIONS (2)
  - Flatulence [Not Recovered/Not Resolved]
  - Ulcer [Not Recovered/Not Resolved]
